FAERS Safety Report 10524609 (Version 1)
Quarter: 2014Q4

REPORT INFORMATION
  Report Type: Spontaneous
  Country: CH (occurrence: CH)
  Receive Date: 20141017
  Receipt Date: 20141017
  Transmission Date: 20150528
  Serious: Yes (Other)
  Sender: FDA-Public Use
  Company Number: CH-ACTAVIS-2014-22052

PATIENT
  Age: 27 Year
  Sex: Male

DRUGS (3)
  1. IBUPROFEN (UNKNOWN) [Suspect]
     Active Substance: IBUPROFEN
     Indication: SUICIDE ATTEMPT
     Dosage: 10 G
     Route: 065
  2. PARACETAMOL  (UNKNOWN) [Suspect]
     Active Substance: ACETAMINOPHEN
     Indication: SUICIDE ATTEMPT
     Dosage: 40 G IN 5 DAYS; 12 G; 20 G; 16 G
     Route: 065
  3. ACETYLSALICYLIC ACID (UNKNOWN) [Suspect]
     Active Substance: ASPIRIN
     Indication: SUICIDE ATTEMPT
     Dosage: 6 (AS REPORTED)
     Route: 065

REACTIONS (5)
  - Chronic gastritis [Unknown]
  - Somnolence [Unknown]
  - Suicide attempt [Unknown]
  - Drug-induced liver injury [Unknown]
  - Intentional overdose [Unknown]
